FAERS Safety Report 25200862 (Version 1)
Quarter: 2025Q2

REPORT INFORMATION
  Report Type: Spontaneous
  Country: KR (occurrence: KR)
  Receive Date: 20250415
  Receipt Date: 20250415
  Transmission Date: 20250716
  Serious: Yes (Other)
  Sender: JOHNSON AND JOHNSON
  Company Number: KR-JNJFOC-20250414503

PATIENT
  Age: 53 Year
  Sex: Male
  Weight: 60.15 kg

DRUGS (12)
  1. ZYTIGA [Suspect]
     Active Substance: ABIRATERONE ACETATE
     Indication: Hormone-dependent prostate cancer
     Route: 048
     Dates: start: 20220725
  2. LEUPROLIDE ACETATE [Suspect]
     Active Substance: LEUPROLIDE ACETATE
     Indication: Hormone-dependent prostate cancer
     Dates: start: 20220919
  3. LYRICA [Concomitant]
     Active Substance: PREGABALIN
     Dates: start: 202211
  4. TRESIBA [Concomitant]
     Active Substance: INSULIN DEGLUDEC
     Dates: start: 202211
  5. ESODUO [Concomitant]
     Dates: start: 20231124
  6. MUCOSTA SR [Concomitant]
     Dates: start: 20231124
  7. GLUCOPHAGE XR [Concomitant]
     Active Substance: METFORMIN HYDROCHLORIDE
  8. NESINA [Concomitant]
     Active Substance: ALOGLIPTIN BENZOATE
  9. CRESTOR [Concomitant]
     Active Substance: ROSUVASTATIN CALCIUM
  10. ISOTRETINOIN [Concomitant]
     Active Substance: ISOTRETINOIN
  11. ATIVAN [Concomitant]
     Active Substance: LORAZEPAM
  12. CAL D UP [Concomitant]

REACTIONS (1)
  - Erectile dysfunction [Not Recovered/Not Resolved]

NARRATIVE: CASE EVENT DATE: 20250311
